FAERS Safety Report 23430085 (Version 1)
Quarter: 2024Q1

REPORT INFORMATION
  Report Type: Spontaneous
  Country: US (occurrence: US)
  Receive Date: 20240122
  Receipt Date: 20240122
  Transmission Date: 20240410
  Serious: No
  Sender: FDA-Public Use
  Company Number: US-JNJFOC-20211130217

PATIENT
  Age: 7 Year
  Sex: Male

DRUGS (3)
  1. RISPERDAL [Suspect]
     Active Substance: RISPERIDONE
     Indication: Aggression
     Dosage: VARYING DOSES OF 0.5 MG TWICE DAILY AND 1 MG AT BEDTIME
     Route: 048
     Dates: start: 201201, end: 201205
  2. RISPERDAL [Suspect]
     Active Substance: RISPERIDONE
     Indication: Mood swings
  3. RISPERDAL [Suspect]
     Active Substance: RISPERIDONE
     Indication: Irritability

REACTIONS (3)
  - Blood glucose increased [Unknown]
  - Hepatic enzyme increased [Unknown]
  - Nausea [Unknown]

NARRATIVE: CASE EVENT DATE: 20120501
